FAERS Safety Report 8395648-6 (Version None)
Quarter: 2012Q2

REPORT INFORMATION
  Report Type: 
  Country: None (occurrence: None)
  Receive Date: 20120530
  Receipt Date: 20120112
  Transmission Date: 20120825
  Serious: No
  Sender: FDA-Public Use
  Company Number: US-GLAXOSMITHKLINE-A0961152A

PATIENT
  Age: 76 Year
  Sex: Female

DRUGS (5)
  1. RANITIDINE [Concomitant]
  2. BENICAR [Concomitant]
  3. ASPIRIN [Concomitant]
  4. SUCRALFATE [Concomitant]
  5. VENTOLIN [Suspect]
     Indication: BRONCHITIS
     Dosage: 2PUFF AS REQUIRED
     Route: 055
     Dates: start: 20040101

REACTIONS (2)
  - CHEST PAIN [None]
  - PAIN [None]
